FAERS Safety Report 25372711 (Version 1)
Quarter: 2025Q2

REPORT INFORMATION
  Report Type: Spontaneous
  Country: US (occurrence: US)
  Receive Date: 20250529
  Receipt Date: 20250529
  Transmission Date: 20250716
  Serious: Yes (Other)
  Sender: UCB
  Company Number: US-UCBSA-2025031470

PATIENT
  Age: 50 Year
  Sex: Female

DRUGS (2)
  1. BIMZELX [Suspect]
     Active Substance: BIMEKIZUMAB-BKZX
     Indication: Psoriatic arthropathy
     Route: 058
     Dates: start: 202412
  2. BIMZELX [Suspect]
     Active Substance: BIMEKIZUMAB-BKZX
     Route: 058
     Dates: start: 202504

REACTIONS (6)
  - Lower respiratory tract infection [Unknown]
  - Mental status changes [Unknown]
  - General physical condition abnormal [Unknown]
  - Blood glucose increased [Unknown]
  - Hepatic enzyme increased [Unknown]
  - Incorrect dose administered [Unknown]

NARRATIVE: CASE EVENT DATE: 20241201
